FAERS Safety Report 21451746 (Version 1)
Quarter: 2022Q4

REPORT INFORMATION
  Report Type: Spontaneous
  Country: US (occurrence: US)
  Receive Date: 20221013
  Receipt Date: 20221013
  Transmission Date: 20230113
  Serious: No
  Sender: FDA-Public Use
  Company Number: US-BRISTOL-MYERS SQUIBB COMPANY-2022-117711

PATIENT
  Age: 76 Year
  Sex: Male

DRUGS (12)
  1. REVLIMID [Suspect]
     Active Substance: LENALIDOMIDE
     Indication: Plasma cell myeloma
     Dosage: FREQUENCY :  1 CAPSULE BY MOUTH ONCE DAILY FOR 3 WEEKS ON, THEN 1 WEEK OFF
     Route: 048
     Dates: start: 20220512
  2. DEXAMETHASONE [Suspect]
     Active Substance: DEXAMETHASONE
     Indication: Product used for unknown indication
     Route: 065
  3. XGEVA [Concomitant]
     Active Substance: DENOSUMAB
     Indication: Product used for unknown indication
     Route: 065
  4. VITAMIN D CAP 1000 UNIT [Concomitant]
     Indication: Product used for unknown indication
     Route: 065
  5. QUININE SULF CAP 324 mg [Concomitant]
     Indication: Product used for unknown indication
     Route: 065
  6. ONDANSETRON TAB 4MG ODT [Concomitant]
     Indication: Product used for unknown indication
     Route: 065
  7. MIRALAX POW 3350 NF [Concomitant]
     Indication: Product used for unknown indication
     Route: 065
  8. LISINOPRIL TAB 40MG [Concomitant]
     Indication: Product used for unknown indication
     Route: 065
  9. B-12 TAB 1000 CR [Concomitant]
     Indication: Product used for unknown indication
     Route: 065
  10. DARZALEX [Concomitant]
     Active Substance: DARATUMUMAB
     Indication: Product used for unknown indication
     Route: 065
  11. ALLOPURINOL TAB 300MG [Concomitant]
     Indication: Product used for unknown indication
     Route: 065
  12. ACYCLOVIR [Concomitant]
     Active Substance: ACYCLOVIR
     Indication: Product used for unknown indication
     Route: 065

REACTIONS (1)
  - Fatigue [Unknown]
